FAERS Safety Report 13928936 (Version 2)
Quarter: 2017Q4

REPORT INFORMATION
  Report Type: Spontaneous
  Country: RU (occurrence: RU)
  Receive Date: 20170901
  Receipt Date: 20171122
  Transmission Date: 20180320
  Serious: Yes (Hospitalization)
  Sender: FDA-Public Use
  Company Number: RU-ASTRAZENECA-2017SE88383

PATIENT
  Age: 78 Year
  Sex: Female
  Weight: 85 kg

DRUGS (13)
  1. BRILINTA [Suspect]
     Active Substance: TICAGRELOR
     Indication: STENT PLACEMENT
     Route: 048
     Dates: start: 20171108, end: 20171110
  2. DIUVER [Concomitant]
     Active Substance: TORSEMIDE
  3. BRILINTA [Suspect]
     Active Substance: TICAGRELOR
     Indication: STENT PLACEMENT
     Route: 048
     Dates: start: 20170517, end: 20170901
  4. CARDIOMAGNYL [Concomitant]
     Active Substance: ASPIRIN\MAGNESIUM HYDROXIDE
  5. BRILINTA [Suspect]
     Active Substance: TICAGRELOR
     Indication: ANGINA UNSTABLE
     Route: 048
  6. LOSARTAN. [Concomitant]
     Active Substance: LOSARTAN
  7. BRILINTA [Suspect]
     Active Substance: TICAGRELOR
     Indication: STENT PLACEMENT
     Route: 048
  8. BRILINTA [Suspect]
     Active Substance: TICAGRELOR
     Indication: ANGINA UNSTABLE
     Route: 048
     Dates: start: 20171108, end: 20171110
  9. CARVEDILOL. [Concomitant]
     Active Substance: CARVEDILOL
  10. BRILINTA [Suspect]
     Active Substance: TICAGRELOR
     Indication: ANGINA UNSTABLE
     Route: 048
     Dates: start: 20170517, end: 20170901
  11. AMIODARONE [Concomitant]
     Active Substance: AMIODARONE
  12. TORASEMIDE [Concomitant]
     Active Substance: TORSEMIDE
  13. ATORVASTATIN [Concomitant]
     Active Substance: ATORVASTATIN

REACTIONS (6)
  - Blood pressure increased [Not Recovered/Not Resolved]
  - Contusion [Recovering/Resolving]
  - Muscular weakness [Not Recovered/Not Resolved]
  - Epistaxis [Recovered/Resolved]
  - Weight decreased [Not Recovered/Not Resolved]
  - Decreased appetite [Recovering/Resolving]

NARRATIVE: CASE EVENT DATE: 20170517
